FAERS Safety Report 7483733-2 (Version None)
Quarter: 2011Q2

REPORT INFORMATION
  Report Type: 
  Country: None (occurrence: None)
  Receive Date: 20110517
  Receipt Date: 20110503
  Transmission Date: 20111010
  Serious: Yes (Hospitalization, Other)
  Sender: FDA-Public Use
  Company Number: PHHY2011US31417

PATIENT
  Sex: Male
  Weight: 75.9 kg

DRUGS (6)
  1. SYNTHROID [Concomitant]
     Indication: HYPOTHYROIDISM
     Dosage: 0.05 MG, DAILY
     Route: 048
  2. EXJADE [Suspect]
     Indication: APLASTIC ANAEMIA
     Dosage: 1750 MG, QD
     Route: 048
  3. NORVASC [Concomitant]
     Indication: HYPERTENSION
     Dosage: 5 MG, DAILY
     Route: 048
  4. IMURAN [Concomitant]
     Indication: APLASTIC ANAEMIA
     Dosage: 50 MG, DAILY
     Route: 048
  5. PREDNISONE [Concomitant]
     Indication: APLASTIC ANAEMIA
     Dosage: 10 MG, DAILY
     Route: 048
  6. PERCOCET [Concomitant]
     Indication: PAIN
     Dosage: 330 MG, PRN
     Route: 048

REACTIONS (10)
  - MALAISE [None]
  - PLATELET COUNT DECREASED [None]
  - KIDNEY INFECTION [None]
  - FATIGUE [None]
  - ASTHENIA [None]
  - LARGE INTESTINAL HAEMORRHAGE [None]
  - PANCREATIC MASS [None]
  - WEIGHT DECREASED [None]
  - RENAL FAILURE [None]
  - PYREXIA [None]
